FAERS Safety Report 6198448-0 (Version None)
Quarter: 2009Q2

REPORT INFORMATION
  Report Type: 
  Country: None (occurrence: None)
  Receive Date: 20090518
  Receipt Date: 20090512
  Transmission Date: 20091009
  Serious: Yes (Other)
  Sender: FDA-Public Use
  Company Number: CHPA2009US11420

PATIENT
  Age: 18 Year
  Sex: Female
  Weight: 68 kg

DRUGS (1)
  1. EXCEDRIN (MIGRAINE) [Suspect]
     Dosage: 10-12 DF, ONCE/SINGLE, ORAL
     Route: 048
     Dates: start: 20090512, end: 20090512

REACTIONS (3)
  - OVERDOSE [None]
  - SOMNOLENCE [None]
  - TREMOR [None]
